FAERS Safety Report 18049898 (Version 1)
Quarter: 2020Q3

REPORT INFORMATION
  Report Type: Spontaneous
  Country: DE (occurrence: DE)
  Receive Date: 20200721
  Receipt Date: 20200721
  Transmission Date: 20201103
  Serious: Yes (Death)
  Sender: FDA-Public Use
  Company Number: DE-FRESENIUS KABI-FK202007303

PATIENT
  Sex: Female

DRUGS (1)
  1. PROPOFOL 1% MCT FRESENIUS [Suspect]
     Active Substance: PROPOFOL
     Indication: DRUG ABUSE
     Route: 065

REACTIONS (1)
  - Drug abuse [Fatal]
